FAERS Safety Report 10114467 (Version 4)
Quarter: 2014Q2

REPORT INFORMATION
  Report Type: Spontaneous
  Country: JP (occurrence: JP)
  Receive Date: 20140426
  Receipt Date: 20140630
  Transmission Date: 20141212
  Serious: Yes (Other)
  Sender: FDA-Public Use
  Company Number: JP-ROCHE-1354668

PATIENT
  Age: 34 Year
  Sex: Female
  Weight: 47 kg

DRUGS (17)
  1. HERCEPTIN [Suspect]
     Indication: NEOADJUVANT THERAPY
     Dosage: DOSAGE IS UNCERTAIN. ?TEN CYCLES
     Route: 041
     Dates: end: 201103
  2. HERCEPTIN [Suspect]
     Indication: ADJUVANT THERAPY
     Route: 041
     Dates: start: 2011
  3. HERCEPTIN [Suspect]
     Indication: ADJUVANT THERAPY
     Route: 041
     Dates: end: 20120928
  4. HERCEPTIN [Suspect]
     Indication: BREAST CANCER RECURRENT
     Route: 041
     Dates: start: 20140214, end: 20140214
  5. HERCEPTIN [Suspect]
     Indication: BREAST CANCER RECURRENT
     Route: 041
     Dates: start: 20140305, end: 20140412
  6. PERJETA [Suspect]
     Indication: BREAST CANCER RECURRENT
     Dosage: STRENGTH: 420MG/14ML
     Route: 041
     Dates: start: 20140214, end: 20140214
  7. PERJETA [Suspect]
     Indication: BREAST CANCER RECURRENT
     Route: 041
     Dates: start: 20140305, end: 20140412
  8. TAXOTERE [Suspect]
     Indication: BREAST CANCER RECURRENT
     Dosage: DOSAGE IS UNCERTAIN.
     Route: 041
     Dates: start: 20140214
  9. TAXOTERE [Suspect]
     Indication: BREAST CANCER RECURRENT
     Route: 041
     Dates: start: 20140305
  10. TAXOTERE [Suspect]
     Indication: BREAST CANCER RECURRENT
     Route: 041
     Dates: start: 20140326, end: 20140412
  11. PACLITAXEL [Concomitant]
     Indication: NEOADJUVANT THERAPY
     Dosage: TEN CYCLES
     Route: 041
     Dates: end: 201103
  12. DECADRON [Concomitant]
     Indication: PROPHYLAXIS
     Route: 042
     Dates: start: 20140214
  13. DECADRON [Concomitant]
     Route: 042
     Dates: start: 20140305
  14. DECADRON [Concomitant]
     Route: 042
     Dates: start: 20140326, end: 20140412
  15. SEROTONE [Concomitant]
     Indication: PROPHYLAXIS
     Route: 042
     Dates: start: 20140214
  16. SEROTONE [Concomitant]
     Route: 042
     Dates: start: 20140305
  17. SEROTONE [Concomitant]
     Route: 042
     Dates: start: 20140326, end: 20140412

REACTIONS (4)
  - Interstitial lung disease [Recovered/Resolved]
  - Infusion related reaction [Recovered/Resolved]
  - Abdominal pain [Recovered/Resolved]
  - Acne [Recovered/Resolved]
